FAERS Safety Report 6296738-4 (Version None)
Quarter: 2009Q3

REPORT INFORMATION
  Report Type: 
  Country: None (occurrence: None)
  Receive Date: 20090804
  Receipt Date: 20090727
  Transmission Date: 20100115
  Serious: Yes (Other)
  Sender: FDA-Public Use
  Company Number: ES-JNJFOC-20040306027

PATIENT
  Age: 74 Year
  Sex: Female

DRUGS (8)
  1. REMICADE [Suspect]
     Indication: RHEUMATOID ARTHRITIS
     Route: 042
     Dates: start: 20010525, end: 20020501
  2. METHOTREXATE [Concomitant]
  3. CORTICOSTEROID [Concomitant]
  4. NONSTEROIDAL ANTI-INFLAMMATORY AGENT [Concomitant]
  5. BIPHOSPHONATE [Concomitant]
  6. DIURETIC [Concomitant]
  7. CALCIUM/VITAMIN D [Concomitant]
  8. OMEPRAZOLE [Concomitant]

REACTIONS (1)
  - PULMONARY TUBERCULOSIS [None]
